FAERS Safety Report 17433894 (Version 1)
Quarter: 2020Q1

REPORT INFORMATION
  Report Type: Spontaneous
  Country: CO (occurrence: CO)
  Receive Date: 20200219
  Receipt Date: 20200219
  Transmission Date: 20200409
  Serious: Yes (Hospitalization, Other)
  Sender: FDA-Public Use
  Company Number: CO-AXELLIA-002980

PATIENT
  Age: 64 Year
  Sex: Male

DRUGS (3)
  1. COLISTIN [Suspect]
     Active Substance: COLISTIN
     Indication: PRODUCT USED FOR UNKNOWN INDICATION
     Dosage: (90,000 IU/KG) DIVIDED INTO THREE DAILY DOSES
     Dates: start: 201603, end: 201603
  2. FOSFOMYCIN [Concomitant]
     Active Substance: FOSFOMYCIN
  3. DORIPENEM. [Suspect]
     Active Substance: DORIPENEM
     Indication: PRODUCT USED FOR UNKNOWN INDICATION
     Dates: start: 201603

REACTIONS (2)
  - Acinetobacter infection [Recovered/Resolved]
  - Drug resistance [Unknown]

NARRATIVE: CASE EVENT DATE: 201603
